FAERS Safety Report 8807856 (Version 2)
Quarter: 2012Q4

REPORT INFORMATION
  Report Type: 
  Country: JP (occurrence: JP)
  Receive Date: 20120925
  Receipt Date: 20121003
  Transmission Date: 20130627
  Serious: No
  Sender: FDA-Public Use
  Company Number: JP-GLAXOSMITHKLINE-B0832097A

PATIENT
  Age: 67 Year
  Sex: Female
  Weight: 49 kg

DRUGS (6)
  1. SAMTIREL [Suspect]
     Indication: ANTIFUNGAL PROPHYLAXIS
     Dosage: 1500MG Per day
     Route: 048
     Dates: start: 20120726
  2. THEODUR [Concomitant]
     Indication: ASTHMA
     Dosage: 100MG Twice per day
     Route: 048
     Dates: start: 20120723
  3. ONON [Concomitant]
     Indication: ASTHMA
     Dosage: 225MG Twice per day
     Route: 048
     Dates: start: 20120723
  4. ALLELOCK [Concomitant]
     Indication: ASTHMA
     Dosage: 5MG Twice per day
     Route: 048
     Dates: start: 20120726
  5. MUCOSOLVAN [Concomitant]
     Indication: ASTHMA
     Dosage: 45MG Per day
     Route: 048
     Dates: start: 20120727
  6. FAMOTIDINE [Concomitant]
     Indication: PROPHYLAXIS AGAINST GASTROINTESTINAL ULCER
     Dosage: 20MG Per day
     Route: 048
     Dates: start: 20120801

REACTIONS (1)
  - Hepatic function abnormal [Recovered/Resolved]
